FAERS Safety Report 8896232 (Version 1)
Quarter: 2012Q4

REPORT INFORMATION
  Report Type: Spontaneous
  Country: US (occurrence: None)
  Receive Date: 20121106
  Receipt Date: 20121106
  Transmission Date: 20130627
  Serious: Yes (Other)
  Sender: FDA-Public Use
  Company Number: None

PATIENT
  Age: 47 Year
  Sex: Male
  Weight: 92.99 kg

DRUGS (1)
  1. DOXAZOSIN [Suspect]
     Indication: BPH
     Dates: start: 20121030, end: 20121030

REACTIONS (3)
  - Urinary retention [None]
  - Product counterfeit [None]
  - Drug effect decreased [None]
